FAERS Safety Report 9842404 (Version 1)
Quarter: 2014Q1

REPORT INFORMATION
  Report Type: Spontaneous
  Country: US (occurrence: US)
  Receive Date: 20140124
  Receipt Date: 20140124
  Transmission Date: 20141002
  Serious: No
  Sender: FDA-Public Use
  Company Number: US-GILEAD-2011-0036472

PATIENT
  Age: 75 Year
  Sex: Female

DRUGS (5)
  1. RANEXA [Suspect]
     Indication: ANGINA PECTORIS
     Route: 048
  2. COUMADIN [Concomitant]
  3. METOPROLOL [Concomitant]
  4. LIPITOR [Concomitant]
  5. ASPIRIN [Concomitant]

REACTIONS (1)
  - Arthralgia [Recovered/Resolved]
